FAERS Safety Report 8366377-X (Version None)
Quarter: 2012Q2

REPORT INFORMATION
  Report Type: 
  Country: None (occurrence: None)
  Receive Date: 20120517
  Receipt Date: 20120510
  Transmission Date: 20120825
  Serious: Yes (Other)
  Sender: FDA-Public Use
  Company Number: US-PFIZER INC-2012116930

PATIENT

DRUGS (1)
  1. SOMAVERT [Suspect]
     Dosage: UNK

REACTIONS (2)
  - DISEASE RECURRENCE [None]
  - ACROMEGALY [None]
